FAERS Safety Report 12282897 (Version 1)
Quarter: 2016Q2

REPORT INFORMATION
  Report Type: Spontaneous
  Country: US (occurrence: US)
  Receive Date: 20160419
  Receipt Date: 20160419
  Transmission Date: 20160815
  Serious: Yes (Death)
  Sender: FDA-Public Use
  Company Number: US-WATSON-2016-08185

PATIENT
  Sex: Female

DRUGS (1)
  1. METOCLOPRAMIDE HYDROCHLORIDE (WATSON LABORATORIES) [Suspect]
     Active Substance: METOCLOPRAMIDE HYDROCHLORIDE
     Indication: GASTROOESOPHAGEAL REFLUX DISEASE
     Dosage: 10 MG, 3-4 TIMES DAILY BEFORE MEALS AND AT BEDTIME
     Route: 065
     Dates: end: 20140515

REACTIONS (2)
  - Tardive dyskinesia [Unknown]
  - Lung cancer metastatic [Fatal]
